FAERS Safety Report 7372283-X (Version None)
Quarter: 2011Q1

REPORT INFORMATION
  Report Type: 
  Country: None (occurrence: None)
  Receive Date: 20110324
  Receipt Date: 20110316
  Transmission Date: 20110831
  Serious: Yes (Hospitalization, Congenital Anomaly)
  Sender: FDA-Public Use
  Company Number: A0919481A

PATIENT
  Sex: Male
  Weight: 3.2 kg

DRUGS (10)
  1. LABETALOL [Concomitant]
  2. PRENATAL VITAMINS [Concomitant]
  3. PEPCID [Concomitant]
  4. CEFAZIL [Concomitant]
  5. REGLAN [Concomitant]
  6. PREDNISONE [Concomitant]
  7. VOLMAX [Concomitant]
  8. VIOXX [Concomitant]
  9. PAXIL [Suspect]
     Dosage: 40MG PER DAY
     Route: 064
  10. ERYTHROMYCIN [Concomitant]

REACTIONS (8)
  - COARCTATION OF THE AORTA [None]
  - PATENT DUCTUS ARTERIOSUS [None]
  - BICUSPID AORTIC VALVE [None]
  - CONGENITAL HYDRONEPHROSIS [None]
  - DRUG EXPOSURE DURING PREGNANCY [None]
  - AORTIC VALVE DISEASE [None]
  - ECTOPIC URETER [None]
  - ATRIAL SEPTAL DEFECT [None]
